FAERS Safety Report 4759458-0 (Version None)
Quarter: 2005Q3

REPORT INFORMATION
  Report Type: 
  Country: None (occurrence: None)
  Receive Date: 20050831
  Receipt Date: 20050817
  Transmission Date: 20060218
  Serious: No
  Sender: FDA-Public Use
  Company Number: 216312

PATIENT
  Age: 41 Year
  Sex: Male

DRUGS (4)
  1. AVASTIN [Suspect]
     Indication: RENAL CELL CARCINOMA STAGE UNSPECIFIED
     Dosage: 10 MG/KG, Q2W
     Dates: start: 20050303, end: 20050511
  2. AVASTIN [Suspect]
     Indication: RENAL CELL CARCINOMA STAGE UNSPECIFIED
     Dosage: 10 MG/KG, Q2W
     Dates: start: 20050512
  3. ERLOTINIB (ERLOTINIB) TABLET, 150MG [Suspect]
     Indication: RENAL CELL CARCINOMA STAGE UNSPECIFIED
     Dosage: 150 MG, QD, ORAL; 100 MG, QD, ORAL
     Route: 048
     Dates: start: 20050303, end: 20050511
  4. ERLOTINIB (ERLOTINIB) TABLET, 150MG [Suspect]
     Indication: RENAL CELL CARCINOMA STAGE UNSPECIFIED
     Dosage: 150 MG, QD, ORAL; 100 MG, QD, ORAL
     Route: 048
     Dates: start: 20050512

REACTIONS (4)
  - ARTHRALGIA [None]
  - JOINT RANGE OF MOTION DECREASED [None]
  - LIGAMENT INJURY [None]
  - TENDON RUPTURE [None]
